FAERS Safety Report 13819063 (Version 1)
Quarter: 2017Q3

REPORT INFORMATION
  Report Type: Report from Study
  Country: FR (occurrence: FR)
  Receive Date: 20170731
  Receipt Date: 20170731
  Transmission Date: 20171127
  Serious: Yes (Hospitalization)
  Sender: FDA-Public Use
  Company Number: FR-IPSEN-CABO-16008114

PATIENT
  Age: 57 Year
  Sex: Male
  Weight: 76 kg

DRUGS (14)
  1. INEXIUM [Concomitant]
     Active Substance: ESOMEPRAZOLE
  2. CABOMETYX [Suspect]
     Active Substance: CABOZANTINIB S-MALATE
     Indication: RENAL CELL CARCINOMA
     Dosage: 60 MG, QD
     Route: 048
     Dates: start: 201611, end: 20161228
  3. OXYCODONE [Concomitant]
     Active Substance: OXYCODONE
  4. LAROXYL [Concomitant]
     Active Substance: AMITRIPTYLINE
     Indication: PAIN
  5. RIVOTRIL [Concomitant]
     Active Substance: CLONAZEPAM
  6. GABAPENTINE [Concomitant]
     Active Substance: GABAPENTIN
  7. MOVICOL [Concomitant]
     Active Substance: POLYETHYLENE GLYCOL 3350\POTASSIUM CHLORIDE\SODIUM BICARBONATE\SODIUM CHLORIDE
  8. TRIMEBUTINE [Concomitant]
     Active Substance: TRIMEBUTINE
  9. SOLUPRED [Concomitant]
     Active Substance: PREDNISOLONE
  10. TRIATEC [Concomitant]
     Active Substance: RAMIPRIL
  11. CABOMETYX [Suspect]
     Active Substance: CABOZANTINIB S-MALATE
     Indication: METASTASIS
     Dosage: 60 MG, QD
     Route: 048
     Dates: start: 20170112
  12. OROKEN [Concomitant]
     Active Substance: CEFIXIME
  13. FLECTOR [Concomitant]
     Active Substance: DICLOFENAC EPOLAMINE
  14. KETOPROFENE [Concomitant]
     Active Substance: KETOPROFEN

REACTIONS (5)
  - Deep vein thrombosis [Recovered/Resolved]
  - Accidental overdose [Unknown]
  - Pulmonary embolism [Recovered/Resolved]
  - Hypokalaemia [Recovering/Resolving]
  - Deep vein thrombosis [Recovered/Resolved]

NARRATIVE: CASE EVENT DATE: 20161228
